FAERS Safety Report 8847942 (Version 6)
Quarter: 2015Q3

REPORT INFORMATION
  Report Type: Spontaneous
  Country: US (occurrence: US)
  Receive Date: 20121018
  Receipt Date: 20150923
  Transmission Date: 20151125
  Serious: Yes (Hospitalization, Disabling)
  Sender: FDA-Public Use
  Company Number: US-MERCK-1210USA006864

PATIENT
  Sex: Male
  Weight: 96.15 kg

DRUGS (1)
  1. PROPECIA [Suspect]
     Active Substance: FINASTERIDE
     Indication: ALOPECIA
     Dosage: 1 MG, QD
     Route: 048
     Dates: start: 20011201, end: 20100603

REACTIONS (27)
  - Muscle strain [Unknown]
  - Renal stone removal [Unknown]
  - Liver function test abnormal [Unknown]
  - Nephrolithiasis [Unknown]
  - Essential hypertension [Unknown]
  - Disturbance in sexual arousal [Unknown]
  - Tachycardia [Unknown]
  - Nephrolithiasis [Unknown]
  - Sexual dysfunction [Not Recovered/Not Resolved]
  - Marital problem [Unknown]
  - Blood testosterone decreased [Unknown]
  - Nephrolithiasis [Unknown]
  - Anxiety [Not Recovered/Not Resolved]
  - Panic disorder [Unknown]
  - Prolactinoma [Unknown]
  - Depression [Not Recovered/Not Resolved]
  - Libido decreased [Not Recovered/Not Resolved]
  - Cognitive disorder [Not Recovered/Not Resolved]
  - Gastrooesophageal reflux disease [Unknown]
  - Anxiety [Unknown]
  - Hydrocele [Unknown]
  - Nephrolithiasis [Unknown]
  - Hypercholesterolaemia [Unknown]
  - Barrett^s oesophagus [Unknown]
  - Hydrocele [Unknown]
  - Spermatocele [Unknown]
  - Erectile dysfunction [Not Recovered/Not Resolved]

NARRATIVE: CASE EVENT DATE: 200207
